FAERS Safety Report 25850716 (Version 1)
Quarter: 2025Q3

REPORT INFORMATION
  Report Type: Spontaneous
  Country: CN (occurrence: CN)
  Receive Date: 20250926
  Receipt Date: 20250926
  Transmission Date: 20251021
  Serious: Yes (Life-Threatening, Other)
  Sender: BRISTOL-MYERS SQUIBB COMPANY
  Company Number: CN-MLMSERVICE-20250916-PI633307-00255-3

PATIENT
  Age: 55 Year
  Sex: Female
  Weight: 65 kg

DRUGS (6)
  1. PACLITAXEL [Suspect]
     Active Substance: PACLITAXEL
     Indication: Invasive ductal breast carcinoma
  2. PACLITAXEL [Suspect]
     Active Substance: PACLITAXEL
     Indication: Metastases to lymph nodes
  3. CYCLOPHOSPHAMIDE [Suspect]
     Active Substance: CYCLOPHOSPHAMIDE
     Indication: Invasive ductal breast carcinoma
  4. CYCLOPHOSPHAMIDE [Suspect]
     Active Substance: CYCLOPHOSPHAMIDE
     Indication: Metastases to lymph nodes
  5. PIRARUBICIN [Suspect]
     Active Substance: PIRARUBICIN
     Indication: Invasive ductal breast carcinoma
  6. PIRARUBICIN [Suspect]
     Active Substance: PIRARUBICIN
     Indication: Metastases to lymph nodes

REACTIONS (1)
  - Myelosuppression [Unknown]

NARRATIVE: CASE EVENT DATE: 20240701
